FAERS Safety Report 6924460-7 (Version None)
Quarter: 2010Q3

REPORT INFORMATION
  Report Type: 
  Country: None (occurrence: None)
  Receive Date: 20100810
  Receipt Date: 20100730
  Transmission Date: 20110219
  Serious: Yes (Other)
  Sender: FDA-Public Use
  Company Number: 2010SP039401

PATIENT
  Age: 53 Year
  Sex: Male

DRUGS (1)
  1. DESLORATADINE [Suspect]
     Indication: HYPERSENSITIVITY
     Dosage: 5 MG QD PO
     Route: 048
     Dates: start: 20100603, end: 20100603

REACTIONS (2)
  - CHOKING SENSATION [None]
  - RASH [None]
